FAERS Safety Report 25168674 (Version 1)
Quarter: 2025Q2

REPORT INFORMATION
  Report Type: Spontaneous
  Country: US (occurrence: US)
  Receive Date: 20250407
  Receipt Date: 20250407
  Transmission Date: 20250717
  Serious: No
  Sender: INTRA-CELLULAR THERAPIES
  Company Number: US-INTRA-CELLULAR THERAPIES, INC.-2025ICT00334

PATIENT

DRUGS (2)
  1. CAPLYTA [Suspect]
     Active Substance: LUMATEPERONE
     Dates: start: 2024
  2. LAMOTRIGINE [Concomitant]
     Active Substance: LAMOTRIGINE

REACTIONS (1)
  - Tremor [Unknown]

NARRATIVE: CASE EVENT DATE: 20250101
